FAERS Safety Report 8209055-X (Version None)
Quarter: 2012Q1

REPORT INFORMATION
  Report Type: 
  Country: None (occurrence: None)
  Receive Date: 20120314
  Receipt Date: 20120227
  Transmission Date: 20120608
  Serious: Yes (Other)
  Sender: FDA-Public Use
  Company Number: JP-ABBOTT-12P-087-0901954-00

PATIENT
  Sex: Male

DRUGS (9)
  1. AKINETON [Suspect]
     Indication: AKATHISIA
     Route: 048
     Dates: start: 20110620, end: 20110716
  2. BLONANSERIN [Suspect]
     Indication: DELUSION
  3. FLUNITRAZEPAM [Suspect]
     Indication: INSOMNIA
     Route: 048
     Dates: start: 20100524, end: 20110716
  4. BLONANSERIN [Suspect]
     Indication: HALLUCINATION
     Route: 048
     Dates: start: 20101227, end: 20110716
  5. VALPROATE SODIUM [Suspect]
     Indication: EPILEPSY
     Route: 048
     Dates: end: 20110716
  6. ESTAZOLAM [Suspect]
     Indication: INSOMNIA
     Route: 048
     Dates: start: 20100405, end: 20110716
  7. ZONISAMIDE [Suspect]
     Indication: EPILEPSY
     Route: 048
     Dates: start: 20091020, end: 20110716
  8. PHENOBARBITAL TAB [Suspect]
     Indication: INSOMNIA
     Dates: start: 20100916, end: 20110716
  9. MYSTAN [Suspect]
     Indication: EPILEPSY
     Route: 048
     Dates: end: 20110716

REACTIONS (3)
  - RENAL FAILURE ACUTE [None]
  - ACUTE HEPATIC FAILURE [None]
  - RHABDOMYOLYSIS [None]
